FAERS Safety Report 12582661 (Version 1)
Quarter: 2016Q3

REPORT INFORMATION
  Report Type: Spontaneous
  Country: US (occurrence: None)
  Receive Date: 20160721
  Receipt Date: 20160721
  Transmission Date: 20161109
  Serious: Yes (Death)
  Sender: FDA-Public Use
  Company Number: None

PATIENT
  Sex: Male

DRUGS (2)
  1. TAFINLAR [Suspect]
     Active Substance: DABRAFENIB MESYLATE
     Indication: METASTASIS
     Dosage: TAFINLAR ?TAKE 2 CAPSULES?EVERY 12 HOURS - PO
     Route: 048
     Dates: start: 201602
  2. MEKINIST [Suspect]
     Active Substance: TRAMETINIB DIMETHYL SULFOXIDE
     Indication: METASTASIS
     Dosage: MEKINST?1 TAB DAILY PO
     Route: 048
     Dates: start: 201607

REACTIONS (1)
  - Death [None]
